FAERS Safety Report 23013635 (Version 1)
Quarter: 2023Q4

REPORT INFORMATION
  Report Type: Other
  Country: US (occurrence: None)
  Receive Date: 20231001
  Receipt Date: 20231001
  Transmission Date: 20240110
  Serious: Yes (Hospitalization, Other)
  Sender: FDA-Public Use
  Company Number: US-ROCHE-3425794

PATIENT
  Age: 43 Year
  Sex: Male
  Weight: 86.26 kg

DRUGS (8)
  1. OCREVUS [Suspect]
     Active Substance: OCRELIZUMAB
     Indication: Relapsing-remitting multiple sclerosis
     Dosage: YES
     Route: 042
  2. TYSABRI [Concomitant]
     Active Substance: NATALIZUMAB
  3. GILENYA [Concomitant]
     Active Substance: FINGOLIMOD HYDROCHLORIDE
  4. COPAXONE [Concomitant]
     Active Substance: GLATIRAMER ACETATE
  5. REBIF [Concomitant]
     Active Substance: INTERFERON BETA-1A
  6. TYLENOL [Concomitant]
     Active Substance: ACETAMINOPHEN
  7. NAPROSYN [Concomitant]
     Active Substance: NAPROXEN
  8. IBUPROFEN [Concomitant]
     Active Substance: IBUPROFEN

REACTIONS (5)
  - Urinary tract infection [Recovered/Resolved]
  - Sepsis [Recovered/Resolved]
  - Renal cancer [Recovered/Resolved]
  - Haemangioma [Not Recovered/Not Resolved]
  - Nodule [Not Recovered/Not Resolved]

NARRATIVE: CASE EVENT DATE: 20221101
